FAERS Safety Report 6029538-0 (Version None)
Quarter: 2009Q1

REPORT INFORMATION
  Report Type: 
  Country: None (occurrence: None)
  Receive Date: 20090107
  Receipt Date: 20090106
  Transmission Date: 20090719
  Serious: Yes (Death)
  Sender: FDA-Public Use
  Company Number: US-JNJFOC-20081005351

PATIENT
  Sex: Female

DRUGS (8)
  1. LEVAQUIN [Suspect]
     Indication: URINARY TRACT INFECTION
     Route: 048
  2. LEXAPRO [Concomitant]
     Indication: DEPRESSION
     Route: 048
  3. AMPICILLIN [Concomitant]
     Indication: INFECTION
     Route: 048
  4. PRILOSEC [Concomitant]
     Indication: GASTROOESOPHAGEAL REFLUX DISEASE
     Route: 048
  5. AMBIEN CR [Concomitant]
     Indication: INSOMNIA
     Route: 048
  6. DILAUDID [Concomitant]
     Indication: CANCER PAIN
     Dosage: 4MG TO 10MG, 1 IN EVERY 1 HOUR, AS NEEDED
     Route: 048
  7. NITROFURANTOIN [Concomitant]
     Indication: INFECTION PROPHYLAXIS
     Route: 048
  8. VICODIN [Concomitant]
     Indication: CANCER PAIN
     Dosage: 5/500MG,1 EVERY 4 HOURS, AS NEEDED
     Route: 048

REACTIONS (2)
  - HEPATOTOXICITY [None]
  - ONCOLOGIC COMPLICATION [None]
